FAERS Safety Report 6744614-2 (Version None)
Quarter: 2010Q2

REPORT INFORMATION
  Report Type: 
  Country: None (occurrence: None)
  Receive Date: 20100526
  Receipt Date: 20100526
  Transmission Date: 20101027
  Serious: No
  Sender: FDA-Public Use
  Company Number: None

PATIENT
  Age: 36 Year
  Sex: Male
  Weight: 88.4514 kg

DRUGS (1)
  1. TYLENOL [Suspect]
     Indication: HEADACHE
     Dosage: TWO TABLETS ONCE A DAY, PO
     Route: 048
     Dates: start: 20080117, end: 20080125

REACTIONS (7)
  - DEAFNESS UNILATERAL [None]
  - DIARRHOEA [None]
  - DIZZINESS [None]
  - PYREXIA [None]
  - TINNITUS [None]
  - VERTIGO [None]
  - VOMITING [None]
